FAERS Safety Report 7259311-7 (Version None)
Quarter: 2011Q1

REPORT INFORMATION
  Report Type: 
  Country: None (occurrence: None)
  Receive Date: 20110129
  Receipt Date: 20100830
  Transmission Date: 20110831
  Serious: Yes (Hospitalization, Other)
  Sender: FDA-Public Use
  Company Number: US-ABBOTT-10P-163-0665517-00

PATIENT
  Age: 50 Year
  Sex: Female

DRUGS (1)
  1. HUMIRA [Suspect]
     Indication: PSORIASIS
     Route: 058
     Dates: start: 20091101, end: 20100101

REACTIONS (7)
  - PYODERMA [None]
  - DYSPNOEA [None]
  - FATIGUE [None]
  - PSORIASIS [None]
  - NODULE [None]
  - PNEUMONIA [None]
  - COUGH [None]
